FAERS Safety Report 5200964-2 (Version None)
Quarter: 2007Q1

REPORT INFORMATION
  Report Type: 
  Country: None (occurrence: None)
  Receive Date: 20070103
  Receipt Date: 20061220
  Transmission Date: 20070707
  Serious: Yes (Other)
  Sender: FDA-Public Use
  Company Number: GXKR2006GB08339

PATIENT
  Sex: Male

DRUGS (1)
  1. CIPROFLOXACIN [Suspect]
     Indication: URINARY TRACT INFECTION

REACTIONS (8)
  - APHASIA [None]
  - BLOOD GLUCOSE ABNORMAL [None]
  - BRAIN SCAN ABNORMAL [None]
  - CEREBRAL DISORDER [None]
  - CONVULSION [None]
  - HEMIPARESIS [None]
  - ILL-DEFINED DISORDER [None]
  - SINUS TACHYCARDIA [None]
